FAERS Safety Report 9825498 (Version 1)
Quarter: 2014Q1

REPORT INFORMATION
  Report Type: Spontaneous
  Country: US (occurrence: US)
  Receive Date: 20140117
  Receipt Date: 20140117
  Transmission Date: 20141002
  Serious: No
  Sender: FDA-Public Use
  Company Number: US-PFIZER INC-2014014577

PATIENT
  Age: 41 Year
  Sex: Male
  Weight: 113 kg

DRUGS (4)
  1. LYRICA [Suspect]
     Indication: FIBROMYALGIA
     Dosage: 50 MG, 3X/DAY
     Route: 048
     Dates: start: 201311
  2. XANAX [Concomitant]
     Indication: ANXIETY
     Dosage: 1 MG, 3X/DAY
  3. VICODIN [Concomitant]
     Indication: INTERVERTEBRAL DISC DEGENERATION
     Dosage: ^750 MG^, 2X/DAY
  4. VICODIN [Concomitant]
     Indication: SPINAL COLUMN STENOSIS

REACTIONS (7)
  - Somnolence [Not Recovered/Not Resolved]
  - Micturition disorder [Not Recovered/Not Resolved]
  - Vision blurred [Not Recovered/Not Resolved]
  - Sleep disorder [Not Recovered/Not Resolved]
  - Dry mouth [Not Recovered/Not Resolved]
  - Euphoric mood [Not Recovered/Not Resolved]
  - Bowel movement irregularity [Not Recovered/Not Resolved]
